FAERS Safety Report 9378311 (Version 2)
Quarter: 2013Q3

REPORT INFORMATION
  Report Type: Spontaneous
  Country: US (occurrence: US)
  Receive Date: 20130701
  Receipt Date: 20130709
  Transmission Date: 20140515
  Serious: Yes (Hospitalization)
  Sender: FDA-Public Use
  Company Number: US-GILEAD-2013-0078166

PATIENT
  Sex: Female

DRUGS (3)
  1. LETAIRIS [Suspect]
     Indication: PULMONARY HYPERTENSION
     Dosage: 5 MG, UNK
  2. LETAIRIS [Suspect]
     Indication: CARDIAC DISORDER
  3. LETAIRIS [Suspect]
     Indication: LUNG DISORDER

REACTIONS (1)
  - Cardiac failure congestive [Unknown]
